FAERS Safety Report 5440719-7 (Version None)
Quarter: 2007Q3

REPORT INFORMATION
  Report Type: 
  Country: None (occurrence: None)
  Receive Date: 20070731
  Receipt Date: 20070425
  Transmission Date: 20080115
  Serious: No
  Sender: FDA-Public Use
  Company Number: US200705003803

PATIENT
  Age: 54 Year
  Sex: Female
  Weight: 119.7 kg

DRUGS (6)
  1. BYETTA [Suspect]
     Indication: INSULIN-REQUIRING TYPE II DIABETES MELLITUS
     Dosage: 5 UG, 2/D, SUBCUTANEOUS; 10 UG, 2/D,  SUBCUTANEOUS
     Route: 058
     Dates: start: 20051001, end: 20051101
  2. BYETTA [Suspect]
     Indication: INSULIN-REQUIRING TYPE II DIABETES MELLITUS
     Dosage: 5 UG, 2/D, SUBCUTANEOUS; 10 UG, 2/D,  SUBCUTANEOUS
     Route: 058
     Dates: start: 20051101
  3. EXENATIDE PEN (EXENATIDE PEN) [Concomitant]
  4. LANTUS [Concomitant]
  5. HUMALOG [Concomitant]
  6. METFORMIN HCL [Concomitant]

REACTIONS (3)
  - GLYCOSYLATED HAEMOGLOBIN INCREASED [None]
  - INCREASED APPETITE [None]
  - WEIGHT INCREASED [None]
